FAERS Safety Report 20055659 (Version 1)
Quarter: 2021Q4

REPORT INFORMATION
  Report Type: Report from Study
  Country: US (occurrence: US)
  Receive Date: 20211110
  Receipt Date: 20211110
  Transmission Date: 20220303
  Serious: Yes (Other)
  Sender: FDA-Public Use
  Company Number: US-ABBVIE-21K-163-4148753-00

PATIENT
  Sex: Male

DRUGS (1)
  1. HUMIRA [Suspect]
     Active Substance: ADALIMUMAB
     Indication: Psoriasis
     Dosage: CITRATE-FREE
     Route: 058

REACTIONS (9)
  - Cerebral thrombosis [Unknown]
  - Cerebrovascular accident [Unknown]
  - Brain contusion [Unknown]
  - Speech disorder [Unknown]
  - Gait disturbance [Unknown]
  - Thinking abnormal [Unknown]
  - Blood test abnormal [Unknown]
  - Skull fracture [Unknown]
  - Fall [Unknown]
